FAERS Safety Report 11414263 (Version 1)
Quarter: 2015Q3

REPORT INFORMATION
  Report Type: Spontaneous
  Country: CN (occurrence: CN)
  Receive Date: 20150824
  Receipt Date: 20150824
  Transmission Date: 20151125
  Serious: Yes (Other)
  Sender: FDA-Public Use
  Company Number: PHHY2015CN099744

PATIENT
  Age: 25 Year
  Sex: Female

DRUGS (2)
  1. BETAMETHASONE. [Suspect]
     Active Substance: BETAMETHASONE
     Indication: ROSAI-DORFMAN SYNDROME
     Dosage: 1 MG, UNK
     Route: 065
  2. MOMETASONE FUROATE. [Suspect]
     Active Substance: MOMETASONE FUROATE
     Indication: ROSAI-DORFMAN SYNDROME
     Dosage: 0.1 %, UNK
     Route: 065

REACTIONS (2)
  - Weight increased [Unknown]
  - Hypertension [Unknown]
